FAERS Safety Report 11774549 (Version 1)
Quarter: 2015Q4

REPORT INFORMATION
  Report Type: Spontaneous
  Country: US (occurrence: US)
  Receive Date: 20151124
  Receipt Date: 20151124
  Transmission Date: 20160304
  Serious: Yes (Other)
  Sender: FDA-Public Use
  Company Number: US-TEVA-610730USA

PATIENT
  Sex: Female

DRUGS (1)
  1. COPAXONE [Suspect]
     Active Substance: GLATIRAMER ACETATE
     Dosage: UNKNOWN FORM STRENGTH
     Route: 065

REACTIONS (12)
  - Neuropathy peripheral [Unknown]
  - Primary progressive multiple sclerosis [Unknown]
  - Product use issue [Unknown]
  - Motor dysfunction [Unknown]
  - Skin discolouration [Unknown]
  - Band sensation [Unknown]
  - Feeling abnormal [Unknown]
  - Restless legs syndrome [Unknown]
  - Peripheral swelling [Unknown]
  - Paraesthesia [Unknown]
  - Urinary tract infection [Unknown]
  - Fatigue [Unknown]
